FAERS Safety Report 15745662 (Version 1)
Quarter: 2018Q4

REPORT INFORMATION
  Report Type: Spontaneous
  Country: TW (occurrence: TW)
  Receive Date: 20181220
  Receipt Date: 20181220
  Transmission Date: 20190205
  Serious: Yes (Other)
  Sender: FDA-Public Use
  Company Number: PHHY2018TW185634

PATIENT
  Age: 59 Year
  Sex: Male

DRUGS (2)
  1. PIPERACILLIN AND TAZOBACTAM [Suspect]
     Active Substance: PIPERACILLIN SODIUM\TAZOBACTAM SODIUM
     Indication: PNEUMONIA
     Dosage: 10-DAY COURSE
     Route: 065
  2. TEICOPLANIN [Concomitant]
     Active Substance: TEICOPLANIN
     Indication: OSTEOMYELITIS
     Dosage: 7-DAY COURSE
     Route: 065

REACTIONS (4)
  - Linear IgA disease [Recovering/Resolving]
  - Rash erythematous [Recovering/Resolving]
  - Blister [Recovering/Resolving]
  - Drug eruption [Recovering/Resolving]
